FAERS Safety Report 20157897 (Version 5)
Quarter: 2022Q3

REPORT INFORMATION
  Report Type: Report from Study
  Country: KR (occurrence: KR)
  Receive Date: 20211207
  Receipt Date: 20220816
  Transmission Date: 20221027
  Serious: Yes (Death, Hospitalization, Other)
  Sender: FDA-Public Use
  Company Number: KR-KARYOPHARM-2021KPT001474

PATIENT
  Age: 87 Year
  Sex: Male
  Weight: 40.8 kg

DRUGS (4)
  1. SELINEXOR [Suspect]
     Active Substance: SELINEXOR
     Indication: Plasma cell myeloma
     Dosage: 80 MG, 2X/WEEK
     Route: 048
     Dates: start: 20211101, end: 20211115
  2. SELINEXOR [Suspect]
     Active Substance: SELINEXOR
     Dosage: 100 MG, WEEKLY
     Route: 048
     Dates: start: 20211214, end: 20220310
  3. DEXAMETHASONE [Concomitant]
     Active Substance: DEXAMETHASONE
     Indication: Plasma cell myeloma
     Dosage: UNK
  4. GRANISETRON [Concomitant]
     Active Substance: GRANISETRON
     Indication: Nausea
     Dosage: UNK
     Dates: start: 202111

REACTIONS (4)
  - Plasma cell myeloma [Fatal]
  - Nausea [Unknown]
  - Thrombocytopenia [Recovered/Resolved]
  - Vomiting [Unknown]

NARRATIVE: CASE EVENT DATE: 20211101
